FAERS Safety Report 9325199 (Version 2)
Quarter: 2019Q1

REPORT INFORMATION
  Report Type: Spontaneous
  Country: GR (occurrence: GR)
  Receive Date: 20130604
  Receipt Date: 20190215
  Transmission Date: 20190418
  Serious: Yes (Death, Life-Threatening, Hospitalization, Other)
  Sender: FDA-Public Use
  Company Number: GR-AMGEN-GRCSP2013038901

PATIENT
  Age: 76 Year
  Sex: Female

DRUGS (2)
  1. ENBREL [Suspect]
     Active Substance: ETANERCEPT
     Indication: RHEUMATOID ARTHRITIS
     Dosage: 50 MG, WEEKLY
     Route: 058
     Dates: start: 200703, end: 201302
  2. METHOTREXATE. [Concomitant]
     Active Substance: METHOTREXATE
     Dosage: UNK
     Dates: start: 2001, end: 201302

REACTIONS (7)
  - Urinary tract infection [Recovering/Resolving]
  - Septic shock [Fatal]
  - Tuberculosis [Unknown]
  - Pseudomonas infection [Not Recovered/Not Resolved]
  - Pulmonary tuberculosis [Fatal]
  - Bacteraemia [Fatal]
  - Pyrexia [Unknown]

NARRATIVE: CASE EVENT DATE: 201302
